FAERS Safety Report 8811547 (Version 2)
Quarter: 2013Q1

REPORT INFORMATION
  Report Type: Spontaneous
  Country: US (occurrence: None)
  Receive Date: 20120921
  Receipt Date: 20130301
  Transmission Date: 20140127
  Serious: Yes (Other)
  Sender: FDA-Public Use
  Company Number: 2012SA068494

PATIENT
  Age: 70 Year
  Sex: Female

DRUGS (1)
  1. ICY HOT [Suspect]
     Dates: start: 20120901

REACTIONS (3)
  - Burns third degree [None]
  - Application site burn [None]
  - Activities of daily living impaired [None]
